FAERS Safety Report 23457378 (Version 2)
Quarter: 2024Q2

REPORT INFORMATION
  Report Type: Spontaneous
  Country: IT (occurrence: IT)
  Receive Date: 20240130
  Receipt Date: 20240408
  Transmission Date: 20240716
  Serious: Yes (Other)
  Sender: FDA-Public Use
  Company Number: None

PATIENT
  Age: 80 Year
  Sex: Male

DRUGS (13)
  1. XARELTO [Suspect]
     Active Substance: RIVAROXABAN
     Indication: Atrial fibrillation
     Dosage: XARELTO*28CPR RIV 20MG - SCHEMA POSOLOGICO: 1 CPR/DIE
     Route: 048
  2. LASIX [Concomitant]
     Active Substance: FUROSEMIDE
     Dosage: LASIX*20CPR 500MG  HALF CP/DIE
     Route: 048
     Dates: start: 2023
  3. AVODART [Concomitant]
     Active Substance: DUTASTERIDE
     Dosage: AVODART*30CPS MOLLI 0,5MG  1 CP/DIE ORE 20:00
     Route: 048
     Dates: start: 2023
  4. PANTOPRAZOLE SODIUM [Concomitant]
     Active Substance: PANTOPRAZOLE SODIUM
     Dosage: NOLPAZA*28CPR 40MG  1 CP/DIE LA MATTINA
     Route: 048
     Dates: start: 2023
  5. BIFRIL [ZOFENOPRIL CALCIUM] [Concomitant]
     Dosage: BIFRIL*28CPR RIV 30MG  1 CP/DIE ORE 08:00
     Route: 048
     Dates: start: 2023
  6. CANRENOATE POTASSIUM [Concomitant]
     Active Substance: CANRENOATE POTASSIUM
     Dosage: KANRENOL*20CPR 100MG  1 CP/DIE
     Route: 048
     Dates: start: 2023
  7. ATORVASTATIN [Concomitant]
     Active Substance: ATORVASTATIN
     Dosage: TOTALIP*30CPR RIV 20MG  1 CP/DIE LA SERA
     Route: 048
     Dates: start: 2023
  8. LASIX [Concomitant]
     Active Substance: FUROSEMIDE
     Indication: Hypertensive heart disease
     Dosage: UNK
     Route: 048
     Dates: start: 2023
  9. AVODART [Concomitant]
     Active Substance: DUTASTERIDE
     Indication: Hyperuricaemia
     Dosage: UNK
     Route: 048
     Dates: start: 2023
  10. PANTOPRAZOLE SODIUM [Concomitant]
     Active Substance: PANTOPRAZOLE SODIUM
     Indication: Gastrooesophageal reflux disease
     Dosage: UNK
     Route: 048
     Dates: start: 2023
  11. BIFRIL [ZOFENOPRIL CALCIUM] [Concomitant]
     Indication: Hypertensive heart disease
     Dosage: UNK
     Route: 048
     Dates: start: 2023
  12. CANRENOATE POTASSIUM [Concomitant]
     Active Substance: CANRENOATE POTASSIUM
     Indication: Hypertensive heart disease
     Dosage: UNK
     Route: 048
     Dates: start: 2023
  13. ATORVASTATIN [Concomitant]
     Active Substance: ATORVASTATIN
     Indication: Dyslipidaemia
     Dosage: UNK MG
     Route: 048
     Dates: start: 2023

REACTIONS (3)
  - Renal failure [Recovered/Resolved]
  - Blood creatinine increased [Recovered/Resolved]
  - Glomerular filtration rate decreased [Recovered/Resolved]

NARRATIVE: CASE EVENT DATE: 20230201
